FAERS Safety Report 8215269 (Version 4)
Quarter: 2013Q1

REPORT INFORMATION
  Report Type: Spontaneous
  Country: JP (occurrence: None)
  Receive Date: 20111024
  Receipt Date: 20130206
  Transmission Date: 20140127
  Serious: Yes (Hospitalization)
  Sender: FDA-Public Use
  Company Number: DSJ-2011-20727

PATIENT
  Age: 72 Year
  Sex: Female
  Weight: 48.8 kg

DRUGS (6)
  1. OLMESARTAN MEDOXOMIL [Suspect]
     Indication: HYPERTENSION
     Route: 048
     Dates: start: 20110526
  2. PLACEBO [Suspect]
     Indication: RHEUMATOID ARTHRITIS
     Dosage: PLACEBO
     Route: 058
     Dates: start: 20110222
  3. METHOTREXATE [Suspect]
     Indication: RHEUMATOID ARTHRITIS
     Route: 048
     Dates: start: 20110623
  4. AMLODIPINE [Suspect]
     Indication: HYPERTENSION
     Route: 048
     Dates: start: 20110526
  5. FOLIAMIN (FOLIC ACID) [Suspect]
     Indication: PROPHYLAXIS
     Route: 048
     Dates: start: 20101017
  6. NEW CALCICHEW D3 (COLECALCIFEROL, CALCIUM CARBONATE) (TABLET0 (COLECALCIFEROL, CALCIUM CARBONATE) [Concomitant]

REACTIONS (2)
  - Large intestine polyp [None]
  - Occult blood positive [None]
